FAERS Safety Report 4834368-9 (Version None)
Quarter: 2005Q4

REPORT INFORMATION
  Report Type: 
  Country: None (occurrence: None)
  Receive Date: 20051122
  Receipt Date: 20051117
  Transmission Date: 20060501
  Serious: Yes (Hospitalization)
  Sender: FDA-Public Use
  Company Number: US-MERCK-0511USA03215

PATIENT
  Age: 76 Year
  Sex: Male

DRUGS (1)
  1. VIOXX [Suspect]
     Indication: PAIN
     Route: 048

REACTIONS (7)
  - ARTHRALGIA [None]
  - CONSTIPATION [None]
  - EROSIVE DUODENITIS [None]
  - HYPERSOMNIA [None]
  - INSOMNIA [None]
  - MYALGIA [None]
  - PEPTIC ULCER HAEMORRHAGE [None]
